FAERS Safety Report 13941709 (Version 1)
Quarter: 2017Q3

REPORT INFORMATION
  Report Type: Spontaneous
  Country: RU (occurrence: RU)
  Receive Date: 20170906
  Receipt Date: 20170906
  Transmission Date: 20171127
  Serious: Yes (Death)
  Sender: FDA-Public Use
  Company Number: RU-BAYER-2016-063972

PATIENT
  Age: 59 Year
  Sex: Male
  Weight: 92 kg

DRUGS (2)
  1. ULTRAVIST [Suspect]
     Active Substance: IOPROMIDE
     Indication: ARTERIOGRAM CORONARY
  2. ULTRAVIST [Suspect]
     Active Substance: IOPROMIDE
     Indication: ACUTE MYOCARDIAL INFARCTION
     Dosage: 1 DF, ONCE (SINGLE DOSE)
     Route: 042
     Dates: start: 20150309, end: 20150309

REACTIONS (17)
  - Ischaemic hepatitis [Fatal]
  - Petechiae [Fatal]
  - Coronary artery thrombosis [Fatal]
  - Renal failure [Fatal]
  - Cardiac output decreased [Fatal]
  - Spleen disorder [Fatal]
  - Cardiogenic shock [Fatal]
  - Adrenocortical insufficiency acute [Fatal]
  - Myocardial infarction [Fatal]
  - Gastritis erosive [Fatal]
  - Cardiac failure [Fatal]
  - Vomiting [Fatal]
  - Brain oedema [Fatal]
  - Arteriosclerosis coronary artery [Fatal]
  - Adrenal disorder [Fatal]
  - Acute respiratory distress syndrome [Fatal]
  - Nausea [Fatal]

NARRATIVE: CASE EVENT DATE: 20150309
